FAERS Safety Report 5356383-1 (Version None)
Quarter: 2007Q2

REPORT INFORMATION
  Report Type: 
  Country: None (occurrence: None)
  Receive Date: 20070530
  Receipt Date: 20061023
  Transmission Date: 20071010
  Serious: Yes (Hospitalization)
  Sender: FDA-Public Use
  Company Number: US200609005652

PATIENT
  Age: 52 Year
  Sex: Male
  Weight: 102 kg

DRUGS (3)
  1. ZYPREXA [Suspect]
     Dates: start: 19990101, end: 20030101
  2. DIVALPROEX SODIUM [Concomitant]
  3. PAROXETINE [Concomitant]

REACTIONS (5)
  - BLOOD CHOLESTEROL ABNORMAL [None]
  - BLOOD TRIGLYCERIDES [None]
  - DIABETES MELLITUS [None]
  - HYPOGLYCAEMIA [None]
  - METABOLIC DISORDER [None]
